FAERS Safety Report 7350954-9 (Version None)
Quarter: 2011Q1

REPORT INFORMATION
  Report Type: 
  Country: None (occurrence: None)
  Receive Date: 20110314
  Receipt Date: 20110128
  Transmission Date: 20110831
  Serious: Yes (Death, Other)
  Sender: FDA-Public Use
  Company Number: US-BAXTER-2010BH024375

PATIENT
  Age: 81 Year
  Sex: Male

DRUGS (19)
  1. HEPARIN SODIUM INJECTION [Suspect]
     Route: 042
     Dates: start: 20071023, end: 20071023
  2. ASPIRIN [Concomitant]
     Indication: PRODUCT USED FOR UNKNOWN INDICATION
     Route: 065
  3. HEPARIN SODIUM INJECTION [Suspect]
     Route: 042
     Dates: start: 20071226, end: 20071226
  4. ZOCOR [Concomitant]
     Indication: PRODUCT USED FOR UNKNOWN INDICATION
     Route: 065
  5. HEPARIN SODIUM INJECTION [Suspect]
     Indication: HAEMODIALYSIS
     Route: 042
     Dates: start: 20070929, end: 20080101
  6. HEPARIN SODIUM INJECTION [Suspect]
     Indication: THROMBOSIS PROPHYLAXIS
     Route: 042
     Dates: start: 20070929, end: 20080101
  7. HEPARIN SODIUM INJECTION [Suspect]
     Route: 058
  8. NEXIUM [Concomitant]
     Indication: PRODUCT USED FOR UNKNOWN INDICATION
     Route: 065
  9. LIDODERM [Concomitant]
     Indication: PRODUCT USED FOR UNKNOWN INDICATION
     Route: 061
  10. RISPERDAL [Concomitant]
     Indication: PRODUCT USED FOR UNKNOWN INDICATION
     Route: 065
  11. LANTUS [Concomitant]
     Indication: PRODUCT USED FOR UNKNOWN INDICATION
     Route: 065
  12. NORVASC [Concomitant]
     Indication: PRODUCT USED FOR UNKNOWN INDICATION
     Route: 065
  13. TENORMIN [Concomitant]
     Indication: PRODUCT USED FOR UNKNOWN INDICATION
     Route: 065
  14. HEPARIN SODIUM INJECTION [Suspect]
     Route: 042
     Dates: start: 20071023, end: 20071023
  15. HEPARIN SODIUM INJECTION [Suspect]
     Route: 042
     Dates: start: 20071226, end: 20071226
  16. HYDRALAZINE [Concomitant]
     Indication: PRODUCT USED FOR UNKNOWN INDICATION
     Route: 065
  17. LISINOPRIL [Concomitant]
     Indication: PRODUCT USED FOR UNKNOWN INDICATION
     Route: 065
  18. NOVOLOG [Concomitant]
     Indication: PRODUCT USED FOR UNKNOWN INDICATION
     Route: 065
  19. HEPARIN SODIUM INJECTION [Suspect]
     Route: 058

REACTIONS (18)
  - HYPOXIC-ISCHAEMIC ENCEPHALOPATHY [None]
  - PNEUMONIA [None]
  - SHOCK HAEMORRHAGIC [None]
  - RETROPERITONEAL HAEMORRHAGE [None]
  - GLAUCOMA [None]
  - SEPSIS [None]
  - SHOCK [None]
  - RENAL FAILURE CHRONIC [None]
  - RESPIRATORY FAILURE [None]
  - HYPOTENSION [None]
  - HYPOVENTILATION [None]
  - CEREBRAL INFARCTION [None]
  - HYPERTENSION [None]
  - CARDIAC ARREST [None]
  - RENAL IMPAIRMENT [None]
  - CLOSTRIDIUM DIFFICILE COLITIS [None]
  - ACUTE MYOCARDIAL INFARCTION [None]
  - TRACHEOBRONCHITIS [None]
